FAERS Safety Report 16044164 (Version 5)
Quarter: 2019Q4

REPORT INFORMATION
  Report Type: Report from Study
  Country: US (occurrence: US)
  Receive Date: 20190306
  Receipt Date: 20191213
  Transmission Date: 20200122
  Serious: Yes (Death, Hospitalization, Other)
  Sender: FDA-Public Use
  Company Number: US-ACTELION-A-NJ2018-170723

PATIENT
  Age: 73 Year
  Sex: Female

DRUGS (4)
  1. OXYGEN. [Concomitant]
     Active Substance: OXYGEN
     Dosage: 2 L
  2. OXYGEN. [Concomitant]
     Active Substance: OXYGEN
     Dosage: 3 UNK
  3. OPSUMIT [Suspect]
     Active Substance: MACITENTAN
     Indication: PULMONARY ARTERIAL HYPERTENSION
     Dosage: 10 MG, QD
     Route: 048
     Dates: start: 20171116
  4. UPTRAVI [Suspect]
     Active Substance: SELEXIPAG
     Indication: PULMONARY ARTERIAL HYPERTENSION
     Dosage: 1600 MCG, BID
     Route: 048
     Dates: start: 20180214, end: 20191115

REACTIONS (16)
  - Loss of consciousness [Recovered/Resolved]
  - Headache [Unknown]
  - Myalgia [Unknown]
  - Product dose omission [Recovering/Resolving]
  - Oxygen saturation decreased [Recovered/Resolved]
  - Pyrexia [Unknown]
  - Fluid retention [Unknown]
  - Nasopharyngitis [Unknown]
  - Visual impairment [Unknown]
  - Hospice care [Unknown]
  - Death [Fatal]
  - Foot fracture [Unknown]
  - Chest pain [Recovering/Resolving]
  - Somnolence [Recovering/Resolving]
  - Hypersensitivity [Unknown]
  - Dyspnoea [Unknown]

NARRATIVE: CASE EVENT DATE: 20180406
